FAERS Safety Report 13320636 (Version 1)
Quarter: 2017Q1

REPORT INFORMATION
  Report Type: Spontaneous
  Country: FR (occurrence: FR)
  Receive Date: 20170309
  Receipt Date: 20170309
  Transmission Date: 20170428
  Serious: Yes (Hospitalization)
  Sender: FDA-Public Use
  Company Number: FR-ASTRAZENECA-2017SE23136

PATIENT
  Age: 12061 Day
  Sex: Male

DRUGS (11)
  1. ZELITREX [Concomitant]
     Active Substance: VALACYCLOVIR HYDROCHLORIDE
  2. BACTRIM [Concomitant]
     Active Substance: SULFAMETHOXAZOLE\TRIMETHOPRIM
  3. ENDOXAN [Suspect]
     Active Substance: CYCLOPHOSPHAMIDE
     Indication: SYSTEMIC LUPUS ERYTHEMATOSUS
     Dosage: 500 MG/M2
     Route: 065
  4. ENDOXAN [Suspect]
     Active Substance: CYCLOPHOSPHAMIDE
     Indication: SYSTEMIC LUPUS ERYTHEMATOSUS
     Dosage: 750 MG/M2
     Route: 065
     Dates: start: 20170127, end: 20170210
  5. ENDOXAN [Suspect]
     Active Substance: CYCLOPHOSPHAMIDE
     Indication: SYSTEMIC LUPUS ERYTHEMATOSUS
     Dosage: 750 MG/M2
     Route: 065
     Dates: start: 20170215, end: 20170222
  6. CARDENSIEL [Concomitant]
     Active Substance: BISOPROLOL FUMARATE
  7. SOLUPRED [Concomitant]
     Active Substance: PREDNISOLONE
  8. LEDERFOLDINE [Concomitant]
     Active Substance: LEUCOVORIN
  9. RAMIPRIL. [Concomitant]
     Active Substance: RAMIPRIL
  10. INEXIUM [Suspect]
     Active Substance: ESOMEPRAZOLE
     Dosage: 20.0MG UNKNOWN
     Route: 048
     Dates: end: 20170210
  11. LASILIX [Concomitant]
     Active Substance: FUROSEMIDE

REACTIONS (2)
  - Hepatocellular injury [Recovering/Resolving]
  - Cholestasis [Recovered/Resolved]

NARRATIVE: CASE EVENT DATE: 20170210
